FAERS Safety Report 7409210-2 (Version None)
Quarter: 2011Q2

REPORT INFORMATION
  Report Type: 
  Country: None (occurrence: None)
  Receive Date: 20110412
  Receipt Date: 20110331
  Transmission Date: 20111010
  Serious: Yes (Hospitalization)
  Sender: FDA-Public Use
  Company Number: KR-ELI_LILLY_AND_COMPANY-KR201003001478

PATIENT
  Sex: Male
  Weight: 71 kg

DRUGS (6)
  1. FOLIC ACID [Concomitant]
     Indication: SUPPLEMENTATION THERAPY
     Dosage: 1 MG, DAILY (1/D)
     Route: 048
     Dates: start: 20080613
  2. VITAMIN B-12 [Concomitant]
     Indication: SUPPLEMENTATION THERAPY
     Dosage: 1600 MG, QD
     Route: 030
     Dates: start: 20080613, end: 20080613
  3. RANITIDINE [Concomitant]
     Indication: PROPHYLAXIS
     Dosage: UNK
     Dates: start: 20080704, end: 20080706
  4. DEXAMETHASONE [Concomitant]
     Indication: SUPPLEMENTATION THERAPY
     Dosage: 3 MG, 2/D
     Route: 042
     Dates: start: 20080704, end: 20080706
  5. PEMETREXED [Suspect]
     Indication: NON-SMALL CELL LUNG CANCER
     Dosage: 500 MG/M2 (925 MG) DAY ONE EVER 21 DAYS
     Route: 042
     Dates: start: 20080613
  6. GRANISETRON HCL [Concomitant]
     Indication: PROPHYLAXIS OF NAUSEA AND VOMITING
     Dosage: UNK
     Dates: start: 20080704, end: 20080706

REACTIONS (1)
  - PULMONARY EMBOLISM [None]
